FAERS Safety Report 9485795 (Version 2)
Quarter: 2013Q4

REPORT INFORMATION
  Report Type: Spontaneous
  Country: GB (occurrence: GB)
  Receive Date: 20130829
  Receipt Date: 20131126
  Transmission Date: 20140711
  Serious: Yes (Hospitalization)
  Sender: FDA-Public Use
  Company Number: GB-ACCORD-019042

PATIENT
  Age: 89 Year
  Sex: Female

DRUGS (12)
  1. CLOPIDOGREL [Suspect]
     Indication: PRODUCT USED FOR UNKNOWN INDICATION
     Route: 048
  2. ASPIRIN [Suspect]
     Indication: PRODUCT USED FOR UNKNOWN INDICATION
     Dosage: 75MG DAILY
     Route: 048
  3. FLUDROCORTISONE [Concomitant]
  4. SALBUTAMOL [Concomitant]
  5. DIGOXIN [Concomitant]
  6. PARACETAMOL [Concomitant]
  7. CLENIL MODULITE [Concomitant]
  8. LEVOTHYROXINE [Concomitant]
  9. ZOPICLONE [Concomitant]
     Dosage: ONE AT NIGHT
  10. QUETIAPINE [Concomitant]
     Dosage: ONE AT NIGHT
  11. OMEPRAZOLE [Concomitant]
  12. SODIUM BICARBONATE [Concomitant]

REACTIONS (2)
  - Dyspnoea [Recovered/Resolved]
  - Anaemia [Recovered/Resolved]
